FAERS Safety Report 6970131-0 (Version None)
Quarter: 2010Q3

REPORT INFORMATION
  Report Type: 
  Country: None (occurrence: None)
  Receive Date: 20100903
  Receipt Date: 20100820
  Transmission Date: 20110219
  Serious: Yes (Other)
  Sender: FDA-Public Use
  Company Number: 017961

PATIENT
  Sex: Male
  Weight: 81 kg

DRUGS (10)
  1. NEUPRO [Suspect]
     Indication: PARKINSON'S DISEASE
     Dosage: (2 MG QD), (4 MG QD), (6 MG QD), (8 MG QD)
     Dates: start: 20061201, end: 20061203
  2. NEUPRO [Suspect]
     Indication: PARKINSON'S DISEASE
     Dosage: (2 MG QD), (4 MG QD), (6 MG QD), (8 MG QD)
     Dates: start: 20061204, end: 20061206
  3. NEUPRO [Suspect]
     Indication: PARKINSON'S DISEASE
     Dosage: (2 MG QD), (4 MG QD), (6 MG QD), (8 MG QD)
     Dates: start: 20061207, end: 20061211
  4. NEUPRO [Suspect]
     Indication: PARKINSON'S DISEASE
     Dosage: (2 MG QD), (4 MG QD), (6 MG QD), (8 MG QD)
     Dates: start: 20061212
  5. AMANTADINE HCL [Concomitant]
  6. AZILECT [Concomitant]
  7. PARKINSAN [Concomitant]
  8. MAGNESIUM [Concomitant]
  9. DELMUNO [Concomitant]
  10. MOTILIUM [Concomitant]

REACTIONS (1)
  - ELECTROCARDIOGRAM QT PROLONGED [None]
